FAERS Safety Report 25074166 (Version 2)
Quarter: 2025Q2

REPORT INFORMATION
  Report Type: Report from Study
  Country: US (occurrence: US)
  Receive Date: 20250313
  Receipt Date: 20250409
  Transmission Date: 20250716
  Serious: Yes (Other)
  Sender: ABBVIE
  Company Number: US-ABBVIE-6166551

PATIENT
  Sex: Male

DRUGS (1)
  1. SKYRIZI [Suspect]
     Active Substance: RISANKIZUMAB-RZAA
     Indication: Product used for unknown indication
     Route: 058
     Dates: start: 202409

REACTIONS (6)
  - Hip arthroplasty [Not Recovered/Not Resolved]
  - Arthritis [Unknown]
  - Osteoarthritis [Unknown]
  - Chondropathy [Unknown]
  - Influenza [Not Recovered/Not Resolved]
  - Gastrointestinal infection [Not Recovered/Not Resolved]
